FAERS Safety Report 6970555-1 (Version None)
Quarter: 2010Q3

REPORT INFORMATION
  Report Type: 
  Country: None (occurrence: None)
  Receive Date: 20100824
  Receipt Date: 20100608
  Transmission Date: 20110219
  Serious: Yes (Other)
  Sender: FDA-Public Use
  Company Number: 2010072111

PATIENT
  Age: 74 Year
  Sex: Female

DRUGS (2)
  1. NORVASC [Suspect]
     Indication: HYPERTENSION
     Dosage: 5 MG, 1X/DAY, ORAL
     Route: 048
     Dates: end: 20100101
  2. AMLODIPINE BESYLATE [Suspect]
     Indication: HYPERTENSION
     Dosage: 5 MG, 1X/DAY, ORAL
     Route: 048
     Dates: start: 20100101

REACTIONS (2)
  - EPISTAXIS [None]
  - SINUSITIS [None]
